FAERS Safety Report 8559760-0 (Version None)
Quarter: 2012Q3

REPORT INFORMATION
  Report Type: 
  Country: None (occurrence: None)
  Receive Date: 20120802
  Receipt Date: 20120730
  Transmission Date: 20120928
  Serious: Yes (Other)
  Sender: FDA-Public Use
  Company Number: US-PFIZER INC-2012106150

PATIENT
  Sex: Female

DRUGS (1)
  1. CHANTIX [Suspect]
     Indication: SMOKING CESSATION THERAPY
     Dosage: UNK
     Dates: start: 20070101, end: 20070301

REACTIONS (7)
  - INSOMNIA [None]
  - ANXIETY [None]
  - ANGER [None]
  - SUICIDAL IDEATION [None]
  - DEPRESSION [None]
  - PANIC ATTACK [None]
  - ABNORMAL DREAMS [None]
